FAERS Safety Report 6149497-X (Version None)
Quarter: 2009Q2

REPORT INFORMATION
  Report Type: 
  Country: None (occurrence: None)
  Receive Date: 20090409
  Receipt Date: 20090402
  Transmission Date: 20091009
  Serious: Yes (Hospitalization)
  Sender: FDA-Public Use
  Company Number: FR-ROCHE-622514

PATIENT
  Sex: Male
  Weight: 82 kg

DRUGS (7)
  1. PEG-INTERFERON ALFA 2A (RO 25-8310) [Suspect]
     Indication: HEPATITIS C
     Route: 065
     Dates: start: 20080616
  2. RIBAVIRIN [Suspect]
     Indication: HEPATITIS C
     Dosage: FREQUENCY REPORTED: BID.
     Route: 048
     Dates: start: 20080616
  3. BLINDED TELAPREVIR [Suspect]
     Indication: HEPATITIS C
     Dosage: FREQUENCY REPORTED: Q8H
     Route: 048
     Dates: start: 20080616, end: 20080630
  4. PARACETAMOL [Concomitant]
     Route: 048
     Dates: start: 20080624
  5. IMOVANE [Concomitant]
     Indication: INSOMNIA
     Route: 048
     Dates: start: 20080630, end: 20081105
  6. IMOVANE [Concomitant]
     Dosage: FREQUENCY REPORTED: PRN
     Route: 048
     Dates: start: 20081106
  7. CANNABINOIDS [Concomitant]

REACTIONS (2)
  - AGITATION [None]
  - DELIRIUM [None]
